FAERS Safety Report 8742097 (Version 2)
Quarter: 2012Q4

REPORT INFORMATION
  Report Type: 
  Country: US (occurrence: US)
  Receive Date: 20120824
  Receipt Date: 20120917
  Transmission Date: 20130627
  Serious: Yes (Other)
  Sender: FDA-Public Use
  Company Number: US-PFIZER INC-2012206397

PATIENT
  Age: 49 Year
  Sex: Female
  Weight: 79 kg

DRUGS (10)
  1. ZOLOFT [Suspect]
     Indication: DEPRESSION
     Dosage: 100 mg, 1x/day
     Route: 048
     Dates: start: 2001
  2. ZOLOFT [Suspect]
     Route: 048
  3. ZOLOFT [Suspect]
     Dosage: 100 mg, 1x/day
     Route: 048
  4. SPIRIVA [Concomitant]
     Dosage: UNK
  5. BUPROPION [Concomitant]
     Dosage: 150 mg, 2x/day
  6. SIMVASTATIN [Concomitant]
     Dosage: 40 mg, 1x/day
  7. DILTIAZEM [Concomitant]
     Dosage: 120 mg, 3x/day
  8. NIASPAN ER [Concomitant]
     Dosage: 500 mg, 1x/day
  9. HYDROCODONE W/ACETAMINOPHEN [Concomitant]
     Dosage: 7.5/325 mg, UNK
  10. SOMA [Concomitant]
     Dosage: 350 mg, UNK

REACTIONS (8)
  - Depression [Unknown]
  - Joint injury [Not Recovered/Not Resolved]
  - Gait disturbance [Not Recovered/Not Resolved]
  - Arthralgia [Not Recovered/Not Resolved]
  - Fall [Unknown]
  - Somnolence [Unknown]
  - Crying [Unknown]
  - Nicotinamide decreased [Unknown]
